FAERS Safety Report 8293059-5 (Version None)
Quarter: 2012Q2

REPORT INFORMATION
  Report Type: 
  Country: None (occurrence: None)
  Receive Date: 20120417
  Receipt Date: 20120117
  Transmission Date: 20120825
  Serious: No
  Sender: FDA-Public Use
  Company Number: US-ASTRAZENECA-2012SE03750

PATIENT
  Age: 69 Year
  Sex: Female

DRUGS (4)
  1. NEXIUM [Suspect]
     Route: 048
  2. TOPROL-XL [Concomitant]
  3. NEXIUM [Suspect]
     Dosage: BID
     Route: 048
  4. CRESTOR [Concomitant]

REACTIONS (1)
  - EROSIVE OESOPHAGITIS [None]
